FAERS Safety Report 8311804 (Version 2)
Quarter: 2012Q4

REPORT INFORMATION
  Report Type: 
  Country: US (occurrence: US)
  Receive Date: 20111227
  Receipt Date: 20120917
  Transmission Date: 20130627
  Serious: No
  Sender: FDA-Public Use
  Company Number: US-B.I. PHARMACEUTICALS,INC./RIDGEFIELD-2011-BP-28404BP

PATIENT
  Age: 61 None
  Sex: Female

DRUGS (6)
  1. PRADAXA [Suspect]
     Indication: ATRIAL FIBRILLATION
     Dosage: 300 mg
     Route: 048
     Dates: start: 201009
  2. PRAVACHOL [Concomitant]
     Indication: BLOOD CHOLESTEROL INCREASED
     Dosage: 40 mg
     Route: 048
     Dates: start: 2006
  3. METOPROLOL [Concomitant]
     Indication: HYPERTENSION
     Dosage: 200 mg
     Route: 048
     Dates: start: 2007
  4. LISINOPRIL [Concomitant]
     Indication: HYPERTENSION
     Dosage: 40 mg
     Route: 048
     Dates: start: 2007
  5. AMLODIPINE [Concomitant]
     Indication: HYPERTENSION
     Dosage: 10 mg
     Route: 048
     Dates: start: 2007
  6. ANASTROZOLE [Concomitant]
     Indication: BREAST CANCER
     Dosage: 1 mg
     Route: 048
     Dates: start: 2010

REACTIONS (6)
  - Nasopharyngitis [Not Recovered/Not Resolved]
  - Dyspepsia [Not Recovered/Not Resolved]
  - Dyspepsia [Recovered/Resolved]
  - Tooth extraction [Recovered/Resolved]
  - Fall [Recovered/Resolved]
  - Haematoma [Not Recovered/Not Resolved]
